FAERS Safety Report 12552920 (Version 6)
Quarter: 2018Q3

REPORT INFORMATION
  Report Type: Report from Study
  Country: JP (occurrence: JP)
  Receive Date: 20160713
  Receipt Date: 20180815
  Transmission Date: 20181010
  Serious: Yes (Hospitalization, Other)
  Sender: FDA-Public Use
  Company Number: JP-IPSEN BIOPHARMACEUTICALS, INC.-2016-05957

PATIENT
  Age: 0 Year
  Sex: Female
  Weight: .76 kg

DRUGS (2)
  1. SENNOSIDE [Concomitant]
     Active Substance: SENNOSIDES
     Route: 064
  2. SOMATULINE 90MG [Suspect]
     Active Substance: LANREOTIDE ACETATE
     Indication: ACROMEGALY
     Dosage: 90 MG
     Route: 064
     Dates: start: 20130702, end: 20131003

REACTIONS (6)
  - Premature baby [Unknown]
  - Umbilical cord abnormality [Unknown]
  - Foetal exposure during pregnancy [Unknown]
  - Low birth weight baby [Unknown]
  - Foetal growth restriction [Unknown]
  - Right ventricular failure [Unknown]

NARRATIVE: CASE EVENT DATE: 201401
